FAERS Safety Report 10561904 (Version 4)
Quarter: 2015Q1

REPORT INFORMATION
  Report Type: Report from Study
  Country: JP (occurrence: JP)
  Receive Date: 20141104
  Receipt Date: 20150205
  Transmission Date: 20150720
  Serious: Yes (Death)
  Sender: FDA-Public Use
  Company Number: JP-AMGEN-JPNCT2014084638

PATIENT
  Age: 89 Year
  Sex: Female
  Weight: 49 kg

DRUGS (6)
  1. ELIQUIS [Concomitant]
     Active Substance: APIXABAN
     Indication: THROMBOSIS
     Dosage: 2.5 MG, BID
     Route: 048
     Dates: start: 20140522, end: 20140531
  2. BFLUID [Concomitant]
     Active Substance: AMINO ACIDS\DEXTROSE\ELECTROLYTES NOS\VITAMINS
     Indication: DEHYDRATION
     Dosage: 25 MG, UNK
     Route: 041
     Dates: start: 20140522, end: 20140604
  3. CINACALCET HCL - KHK [Suspect]
     Active Substance: CINACALCET HYDROCHLORIDE
     Indication: HYPERCALCAEMIA
     Dosage: 25 MG, BID
     Route: 048
     Dates: start: 20140522
  4. TAKEPRON [Concomitant]
     Active Substance: LANSOPRAZOLE
     Indication: GASTROOESOPHAGEAL REFLUX DISEASE
     Dosage: 15 MG, UNK
     Route: 048
     Dates: start: 20120522, end: 20120531
  5. TAKEPRON [Concomitant]
     Active Substance: LANSOPRAZOLE
     Indication: GASTROOESOPHAGEAL REFLUX DISEASE
  6. TRESIBA [Concomitant]
     Active Substance: INSULIN DEGLUDEC
     Indication: TYPE 2 DIABETES MELLITUS
     Dosage: 3 IU, UNK
     Route: 065
     Dates: end: 20140606

REACTIONS (1)
  - Cerebral infarction [Fatal]

NARRATIVE: CASE EVENT DATE: 20140604
